FAERS Safety Report 7982704-7 (Version None)
Quarter: 2011Q4

REPORT INFORMATION
  Report Type: 
  Country: None (occurrence: None)
  Receive Date: 20111215
  Receipt Date: 20111202
  Transmission Date: 20120403
  Serious: Yes (Hospitalization)
  Sender: FDA-Public Use
  Company Number: US-OPTIMER-20110059

PATIENT

DRUGS (2)
  1. DIFICID [Suspect]
     Indication: CLOSTRIDIAL INFECTION
     Dosage: 200 MG, BID
     Route: 048
     Dates: start: 20111013, end: 20111001
  2. KEFLEX [Concomitant]
     Indication: PRODUCT USED FOR UNKNOWN INDICATION
     Dosage: UNK
     Dates: start: 20111023

REACTIONS (6)
  - VOMITING [None]
  - DISEASE RECURRENCE [None]
  - DIARRHOEA [None]
  - ABDOMINAL PAIN [None]
  - CLOSTRIDIAL INFECTION [None]
  - HEADACHE [None]
